FAERS Safety Report 23798841 (Version 2)
Quarter: 2024Q2

REPORT INFORMATION
  Report Type: Spontaneous
  Country: JP (occurrence: JP)
  Receive Date: 20240430
  Receipt Date: 20240515
  Transmission Date: 20240716
  Serious: Yes (Other)
  Sender: FDA-Public Use
  Company Number: JP-BEH-2024171640

PATIENT
  Age: 5 Decade
  Sex: Male
  Weight: 85 kg

DRUGS (6)
  1. ANTIHEMOPHILIC FACTOR, HUMAN RECOMBINANT [Suspect]
     Active Substance: ANTIHEMOPHILIC FACTOR, HUMAN RECOMBINANT
     Indication: Haemorrhage prophylaxis
     Dosage: 2000 IU, TIW
     Route: 065
  2. ANTIHEMOPHILIC FACTOR, HUMAN RECOMBINANT [Suspect]
     Active Substance: ANTIHEMOPHILIC FACTOR, HUMAN RECOMBINANT
     Indication: Haemostasis
     Dosage: 5000 IU, SINGLE (BOLUS I.V. (INTRAVENOUS))
     Route: 042
  3. ANTIHEMOPHILIC FACTOR, HUMAN RECOMBINANT [Suspect]
     Active Substance: ANTIHEMOPHILIC FACTOR, HUMAN RECOMBINANT
     Indication: Haemorrhage
     Dosage: 3000 IU (500 IU X 6, TOTAL 30 ML) AT 3.0 ML/H, C.I.V. (CONTINUOUS INTRAVENOUS)
     Route: 042
  4. ANTIHEMOPHILIC FACTOR, HUMAN RECOMBINANT [Suspect]
     Active Substance: ANTIHEMOPHILIC FACTOR, HUMAN RECOMBINANT
     Dosage: 2000 IU, SINGLE (BOLUS I.V. (INTRAVENOUS))
     Route: 042
  5. ANTIHEMOPHILIC FACTOR, HUMAN RECOMBINANT [Suspect]
     Active Substance: ANTIHEMOPHILIC FACTOR, HUMAN RECOMBINANT
     Dosage: 500 IU, SINGLE (BOLUS I.V. (INTRAVENOUS))
     Route: 042
  6. ANTIHEMOPHILIC FACTOR, HUMAN RECOMBINANT [Suspect]
     Active Substance: ANTIHEMOPHILIC FACTOR, HUMAN RECOMBINANT
     Dosage: 3000 IU (500 IU X 6, TOTAL 30 ML) AT 2.5 ML/H, C.I.V. (CONTINUOUS INTRAVENOUS)
     Route: 042

REACTIONS (2)
  - Splenic artery aneurysm [Unknown]
  - Joint arthroplasty [Unknown]
